FAERS Safety Report 26062131 (Version 1)
Quarter: 2025Q4

REPORT INFORMATION
  Report Type: Spontaneous
  Country: US (occurrence: US)
  Receive Date: 20251119
  Receipt Date: 20251119
  Transmission Date: 20260117
  Serious: No
  Sender: GALDERMA
  Company Number: US-GALDERMA-US2025021981

PATIENT

DRUGS (7)
  1. NEMLUVIO [Suspect]
     Active Substance: NEMOLIZUMAB-ILTO
     Indication: Dermatitis atopic
     Dosage: UNK
     Route: 058
     Dates: start: 202508, end: 202508
  2. INQOVI [Concomitant]
     Active Substance: CEDAZURIDINE\DECITABINE
     Indication: Leukaemia
     Dosage: UNK
     Dates: start: 202509, end: 202509
  3. INQOVI [Concomitant]
     Active Substance: CEDAZURIDINE\DECITABINE
     Dosage: UNK
     Dates: start: 202509, end: 202509
  4. INQOVI [Concomitant]
     Active Substance: CEDAZURIDINE\DECITABINE
     Dosage: UNK
     Dates: start: 202509, end: 202509
  5. INQOVI [Concomitant]
     Active Substance: CEDAZURIDINE\DECITABINE
     Dosage: UNK
     Dates: start: 202510, end: 202510
  6. CEFPODOXIME [Concomitant]
     Active Substance: CEFPODOXIME
     Indication: Product used for unknown indication
     Dosage: 100 MILLIGRAM, BID
     Dates: start: 2025
  7. FLUCONAZOLE [Concomitant]
     Active Substance: FLUCONAZOLE
     Indication: Product used for unknown indication
     Dosage: 200 MILLIGRAM, BID
     Dates: start: 2025

REACTIONS (2)
  - Rash macular [Not Recovered/Not Resolved]
  - Pruritus [Not Recovered/Not Resolved]

NARRATIVE: CASE EVENT DATE: 20251001
